FAERS Safety Report 25649084 (Version 2)
Quarter: 2025Q3

REPORT INFORMATION
  Report Type: Spontaneous
  Country: JP (occurrence: JP)
  Receive Date: 20250806
  Receipt Date: 20250811
  Transmission Date: 20251020
  Serious: Yes (Death, Other)
  Sender: BRISTOL-MYERS SQUIBB COMPANY
  Company Number: JP-BRISTOL-MYERS SQUIBB COMPANY-2025-108762

PATIENT
  Age: 63 Year
  Sex: Male

DRUGS (16)
  1. VIDAZA [Suspect]
     Active Substance: AZACITIDINE
     Indication: FLT3 gene mutation
     Route: 042
  2. VIDAZA [Suspect]
     Active Substance: AZACITIDINE
     Indication: Acute lymphocytic leukaemia
  3. VIDAZA [Suspect]
     Active Substance: AZACITIDINE
     Indication: Lymphoma
  4. CYTARABINE [Suspect]
     Active Substance: CYTARABINE
     Indication: FLT3 gene mutation
     Route: 042
  5. CYTARABINE [Suspect]
     Active Substance: CYTARABINE
     Indication: Acute lymphocytic leukaemia
  6. CYTARABINE [Suspect]
     Active Substance: CYTARABINE
     Indication: Lymphoma
  7. VENCLEXTA [Concomitant]
     Active Substance: VENETOCLAX
     Indication: FLT3 gene mutation
  8. ONCOVIN [Concomitant]
     Active Substance: VINCRISTINE SULFATE
     Indication: FLT3 gene mutation
  9. DAUNORUBICIN HYDROCHLORIDE [Concomitant]
     Active Substance: DAUNORUBICIN HYDROCHLORIDE
     Indication: FLT3 gene mutation
  10. ASPARAGINASE [Concomitant]
     Active Substance: ASPARAGINASE
     Indication: FLT3 gene mutation
  11. PREDNISOLONE [Concomitant]
     Active Substance: PREDNISOLONE
     Indication: FLT3 gene mutation
  12. ETOPOSIDE [Concomitant]
     Active Substance: ETOPOSIDE
     Indication: FLT3 gene mutation
  13. DEXAMETHASONE [Concomitant]
     Active Substance: DEXAMETHASONE
     Indication: FLT3 gene mutation
  14. METHOTREXATE [Concomitant]
     Active Substance: METHOTREXATE
     Indication: FLT3 gene mutation
  15. MERCAPTOPURINE [Concomitant]
     Active Substance: MERCAPTOPURINE
     Indication: FLT3 gene mutation
  16. CYCLOPHOSPHAMIDE [Concomitant]
     Active Substance: CYCLOPHOSPHAMIDE
     Indication: FLT3 gene mutation

REACTIONS (1)
  - Death [Fatal]
